FAERS Safety Report 11181299 (Version 1)
Quarter: 2015Q2

REPORT INFORMATION
  Report Type: Spontaneous
  Country: BR (occurrence: BR)
  Receive Date: 20150611
  Receipt Date: 20150611
  Transmission Date: 20150821
  Serious: Yes (Hospitalization)
  Sender: FDA-Public Use
  Company Number: PHHY2015BR067767

PATIENT
  Age: 22 Year
  Sex: Male

DRUGS (2)
  1. VALPROIC ACID. [Concomitant]
     Active Substance: VALPROIC ACID
     Indication: SEIZURE
     Dosage: 600 MG, QD
     Route: 048
  2. OMEPRAZOLE. [Suspect]
     Active Substance: OMEPRAZOLE
     Indication: DYSPEPSIA
     Dosage: 40 MG, QD
     Route: 048

REACTIONS (10)
  - Primary hypoparathyroidism [Recovering/Resolving]
  - Major depression [Recovering/Resolving]
  - Decreased appetite [Recovering/Resolving]
  - Hypomagnesaemia [Recovering/Resolving]
  - Fatigue [Recovering/Resolving]
  - Anhedonia [Recovering/Resolving]
  - Paraesthesia [Recovering/Resolving]
  - Decreased interest [Recovering/Resolving]
  - Disturbance in attention [Recovering/Resolving]
  - Insomnia [Recovering/Resolving]
